FAERS Safety Report 15254730 (Version 2)
Quarter: 2018Q4

REPORT INFORMATION
  Report Type: Spontaneous
  Country: US (occurrence: US)
  Receive Date: 20180808
  Receipt Date: 20181114
  Transmission Date: 20190204
  Serious: Yes (Other)
  Sender: FDA-Public Use
  Company Number: US-SA-2018SA211988

PATIENT
  Age: 46 Year
  Sex: Female
  Weight: 58.05 kg

DRUGS (15)
  1. CYTOXAN [Concomitant]
     Active Substance: CYCLOPHOSPHAMIDE
     Indication: CHEMOTHERAPY
     Dosage: 80 MG
  2. EMEND [APREPITANT] [Concomitant]
  3. TAXOTERE [Suspect]
     Active Substance: DOCETAXEL
     Indication: BREAST CANCER FEMALE
     Dosage: 120 MG, Q3W
     Route: 042
     Dates: start: 20050808, end: 20050808
  4. ATIVAN [Concomitant]
     Active Substance: LORAZEPAM
  5. TAXOTERE [Suspect]
     Active Substance: DOCETAXEL
     Dosage: 120 MG, Q3W
     Route: 042
     Dates: start: 20051122, end: 20051122
  6. ZOLOFT [Concomitant]
     Active Substance: SERTRALINE HYDROCHLORIDE
     Dosage: 200 MG, QD
  7. ADRIAMYCIN [Concomitant]
     Active Substance: DOXORUBICIN HYDROCHLORIDE
     Dosage: 80 MG
  8. KLONOPIN [Concomitant]
     Active Substance: CLONAZEPAM
     Dosage: UNK UNK, PRN
  9. NEOSAR [Concomitant]
     Active Substance: CYCLOPHOSPHAMIDE
  10. NEULASTA [Concomitant]
     Active Substance: PEGFILGRASTIM
  11. PAXIL [PAROXETINE HYDROCHLORIDE] [Concomitant]
  12. DECADRAN [DEXAMETHASONE] [Concomitant]
  13. PROZAC [Concomitant]
     Active Substance: FLUOXETINE HYDROCHLORIDE
  14. ALOXI [Concomitant]
     Active Substance: PALONOSETRON HYDROCHLORIDE
  15. KYTRIL [Concomitant]
     Active Substance: GRANISETRON HYDROCHLORIDE

REACTIONS (4)
  - Alopecia [Not Recovered/Not Resolved]
  - Psychological trauma [Unknown]
  - Anxiety [Unknown]
  - Emotional distress [Unknown]

NARRATIVE: CASE EVENT DATE: 20050901
